FAERS Safety Report 14746421 (Version 1)
Quarter: 2018Q2

REPORT INFORMATION
  Report Type: Spontaneous
  Country: TH (occurrence: TH)
  Receive Date: 20180411
  Receipt Date: 20180411
  Transmission Date: 20180711
  Serious: Yes (Death)
  Sender: FDA-Public Use
  Company Number: TH-B.I. PHARMACEUTICALS,INC./RIDGEFIELD-2018-BI-019277

PATIENT
  Age: 61 Year
  Sex: Male

DRUGS (2)
  1. GILOTRIF [Suspect]
     Active Substance: AFATINIB
     Indication: SQUAMOUS CELL CARCINOMA OF THE TONGUE
     Route: 065
  2. PACLITAXEL. [Suspect]
     Active Substance: PACLITAXEL
     Indication: SQUAMOUS CELL CARCINOMA OF THE TONGUE
     Route: 065

REACTIONS (2)
  - Paronychia [Unknown]
  - Skin squamous cell carcinoma metastatic [Fatal]
